FAERS Safety Report 25910785 (Version 5)
Quarter: 2025Q4

REPORT INFORMATION
  Report Type: Spontaneous
  Country: US (occurrence: US)
  Receive Date: 20251013
  Receipt Date: 20251222
  Transmission Date: 20260118
  Serious: Yes (Hospitalization)
  Sender: SANOFI AVENTIS
  Company Number: US-SA-2025SA240141

PATIENT
  Age: 56 Year
  Sex: Female

DRUGS (1)
  1. DUPIXENT [Suspect]
     Active Substance: DUPILUMAB
     Indication: Asthma
     Dosage: 300 MG, QOW
     Route: 058
     Dates: start: 202507

REACTIONS (9)
  - Vomiting [Recovering/Resolving]
  - Illness [Recovering/Resolving]
  - Swelling face [Recovering/Resolving]
  - Urinary tract infection [Recovering/Resolving]
  - Upper respiratory tract infection [Recovering/Resolving]
  - Dehydration [Recovering/Resolving]
  - Swelling face [Unknown]
  - Incorrect dose administered [Unknown]
  - Poor quality product administered [Unknown]

NARRATIVE: CASE EVENT DATE: 20250101
